FAERS Safety Report 25627741 (Version 1)
Quarter: 2025Q3

REPORT INFORMATION
  Report Type: Spontaneous
  Country: US (occurrence: US)
  Receive Date: 20250731
  Receipt Date: 20250731
  Transmission Date: 20251021
  Serious: Yes (Other)
  Sender: EDENBRIDGE PHARMACEUTICALS
  Company Number: US-EDENBRIDGE PHARMACEUTICALS, LLC-US-2025EDE000033

PATIENT
  Sex: Male

DRUGS (2)
  1. IVERMECTIN [Suspect]
     Active Substance: IVERMECTIN
     Indication: Helminthic infection
     Route: 065
     Dates: start: 202503, end: 202503
  2. IVERMECTIN [Suspect]
     Active Substance: IVERMECTIN
     Route: 065
     Dates: start: 2025, end: 2025

REACTIONS (2)
  - Blindness [Unknown]
  - Drug ineffective [Unknown]

NARRATIVE: CASE EVENT DATE: 20250101
